FAERS Safety Report 20209834 (Version 1)
Quarter: 2021Q4

REPORT INFORMATION
  Report Type: Spontaneous
  Country: ES (occurrence: ES)
  Receive Date: 20211221
  Receipt Date: 20211221
  Transmission Date: 20220304
  Serious: Yes (Hospitalization, Other)
  Sender: FDA-Public Use
  Company Number: ES-SUN PHARMACEUTICAL INDUSTRIES LTD-2021RR-320000

PATIENT
  Age: 67 Year
  Sex: Male

DRUGS (3)
  1. OXALIPLATIN [Suspect]
     Active Substance: OXALIPLATIN
     Indication: Colon cancer
     Dosage: 50 MILLILITER
     Route: 065
     Dates: start: 201906
  2. OXALIPLATIN [Suspect]
     Active Substance: OXALIPLATIN
     Dosage: UNK
     Route: 065
     Dates: start: 201711, end: 201802
  3. OXALIPLATIN [Suspect]
     Active Substance: OXALIPLATIN
     Dosage: 154 MILLIGRAM

REACTIONS (2)
  - Cytokine release syndrome [Unknown]
  - Disease recurrence [Recovering/Resolving]
